FAERS Safety Report 8161834-3 (Version None)
Quarter: 2012Q1

REPORT INFORMATION
  Report Type: 
  Country: None (occurrence: None)
  Receive Date: 20120224
  Receipt Date: 20110706
  Transmission Date: 20120608
  Serious: No
  Sender: FDA-Public Use
  Company Number: US-BRISTOL-MYERS SQUIBB COMPANY-15878614

PATIENT
  Sex: Male

DRUGS (2)
  1. METFORMIN HCL [Suspect]
  2. VICTOZA [Suspect]

REACTIONS (4)
  - BLOOD GLUCOSE INCREASED [None]
  - WEIGHT DECREASED [None]
  - LIMB DISCOMFORT [None]
  - DECREASED APPETITE [None]
